FAERS Safety Report 22022158 (Version 3)
Quarter: 2023Q1

REPORT INFORMATION
  Report Type: Report from Study
  Country: US (occurrence: US)
  Receive Date: 20230222
  Receipt Date: 20230316
  Transmission Date: 20230417
  Serious: No
  Sender: FDA-Public Use
  Company Number: US-ABBVIE-4278677

PATIENT
  Age: 43 Year
  Sex: Female

DRUGS (8)
  1. ORIAHNN [Suspect]
     Active Substance: ELAGOLIX SODIUM\ESTRADIOL\NORETHINDRONE
     Indication: Product used for unknown indication
     Dosage: 300-1-0.5MG?1 MORNING CAPSULE IN THE AM AND 1 EVENING CAPSULE IN THE PM AS DIRECTED?END DATE 2022
     Route: 048
     Dates: start: 202211
  2. ORIAHNN [Suspect]
     Active Substance: ELAGOLIX SODIUM\ESTRADIOL\NORETHINDRONE
     Indication: Product used for unknown indication
     Dosage: 300-1-0.5MG?FREQUENCY TEXT: 1 EVENING CAPSULE IN THE PM
     Route: 048
  3. ORIAHNN [Suspect]
     Active Substance: ELAGOLIX SODIUM\ESTRADIOL\NORETHINDRONE
     Indication: Product used for unknown indication
     Dosage: 300-1-0.5MG?FREQUENCY TEXT: 1 EVENING CAPSULE IN THE PM
     Route: 048
  4. ORIAHNN [Suspect]
     Active Substance: ELAGOLIX SODIUM\ESTRADIOL\NORETHINDRONE
     Indication: Product used for unknown indication
     Dosage: 300-1-0.5MG?FREQUENCY TEXT: 1 MORNING CAPSULE IN THE AM
     Route: 048
  5. ORIAHNN [Suspect]
     Active Substance: ELAGOLIX SODIUM\ESTRADIOL\NORETHINDRONE
     Indication: Product used for unknown indication
     Dosage: 300-1-0.5MG?1 MORNING CAPSULE IN THE AM AND 1 EVENING CAPSULE IN THE PM AS DIRECTED?RESTARTED
     Route: 048
  6. VITAMIN D3 [Suspect]
     Active Substance: CHOLECALCIFEROL
     Indication: Product used for unknown indication
     Route: 065
  7. ORIAHNN [Suspect]
     Active Substance: ELAGOLIX SODIUM\ESTRADIOL\NORETHINDRONE
     Indication: Product used for unknown indication
     Dosage: 300-1-0.5MG?1 MORNING CAPSULE IN THE AM AND 1 EVENING CAPSULE IN THE PM AS DIRECTED?END DATE 2022
     Route: 048
     Dates: start: 202211
  8. ORIAHNN [Suspect]
     Active Substance: ELAGOLIX SODIUM\ESTRADIOL\NORETHINDRONE
     Indication: Product used for unknown indication
     Dosage: 300-1-0.5MG?1 MORNING CAPSULE IN THE AM AND 1 EVENING CAPSULE IN THE PM AS DIRECTED?RESTARTED
     Route: 048

REACTIONS (14)
  - Alopecia [Unknown]
  - Weight increased [Unknown]
  - Body temperature increased [Unknown]
  - Migraine [Unknown]
  - Nausea [Unknown]
  - Pain in extremity [Unknown]
  - Back pain [Unknown]
  - Haemorrhage [Unknown]
  - Memory impairment [Unknown]
  - Libido decreased [Unknown]
  - Insomnia [Unknown]
  - Dizziness [Unknown]
  - Pain [Unknown]
  - Sleep apnoea syndrome [Unknown]

NARRATIVE: CASE EVENT DATE: 20230101
